FAERS Safety Report 9475537 (Version 2)
Quarter: 2013Q3

REPORT INFORMATION
  Report Type: Spontaneous
  Country: FR (occurrence: FR)
  Receive Date: 20130826
  Receipt Date: 20130826
  Transmission Date: 20140515
  Serious: Yes (Hospitalization)
  Sender: FDA-Public Use
  Company Number: FR-009507513-1302FRA007057

PATIENT
  Age: 91 Year
  Sex: Female

DRUGS (2)
  1. LOSARTAN/HYDROCHLOROTHIAZIDE ZENTIVA 50MG/12,5MG, COMPRIM? PELLICUL? [Suspect]
     Indication: HYPERTENSION
     Dosage: 50/12.5 MG, QD
     Route: 048
     Dates: start: 201208, end: 201212
  2. VENTOLINE (ALBUTEROL SULFATE) [Concomitant]
     Route: 045

REACTIONS (2)
  - Blood pressure increased [Recovered/Resolved]
  - Malaise [Recovered/Resolved]
